FAERS Safety Report 13772013 (Version 2)
Quarter: 2017Q3

REPORT INFORMATION
  Report Type: Spontaneous
  Country: IT (occurrence: IT)
  Receive Date: 20170720
  Receipt Date: 20170720
  Transmission Date: 20171127
  Serious: Yes (Hospitalization, Other)
  Sender: FDA-Public Use
  Company Number: IT-AUROBINDO-AUR-APL-2014-05773

PATIENT
  Age: 48 Year
  Sex: Male

DRUGS (3)
  1. ZOFENOPRILCALCIUM [Suspect]
     Active Substance: ZOFENOPRIL CALCIUM
     Indication: HYPERTENSION
     Dosage: 42.5 MG, ONCE A DAY
     Route: 048
     Dates: start: 20140101, end: 20140429
  2. CARVEDILOL FILM-COATED TABLETS [Suspect]
     Active Substance: CARVEDILOL
     Dosage: 25 MG,ONCE,
     Route: 048
     Dates: start: 20140429, end: 20140429
  3. TAPAZOLE [Concomitant]
     Active Substance: METHIMAZOLE
     Indication: HYPERTHYROIDISM
     Dosage: 2 DF,UNK,
     Route: 048

REACTIONS (2)
  - Syncope [Recovered/Resolved]
  - Blood pressure inadequately controlled [Unknown]

NARRATIVE: CASE EVENT DATE: 20140429
